FAERS Safety Report 25421488 (Version 1)
Quarter: 2025Q2

REPORT INFORMATION
  Report Type: Spontaneous
  Country: US (occurrence: US)
  Receive Date: 20250611
  Receipt Date: 20250611
  Transmission Date: 20250717
  Serious: No
  Sender: ELI LILLY AND COMPANY
  Company Number: US-ELI_LILLY_AND_COMPANY-US202506004916

PATIENT
  Age: 71 Year

DRUGS (4)
  1. KISUNLA [Suspect]
     Active Substance: DONANEMAB-AZBT
     Indication: Product used for unknown indication
     Route: 065
     Dates: start: 20250312
  2. KISUNLA [Suspect]
     Active Substance: DONANEMAB-AZBT
     Route: 065
  3. KISUNLA [Suspect]
     Active Substance: DONANEMAB-AZBT
     Route: 065
     Dates: start: 20250507
  4. RIVASTIGMINE [Concomitant]
     Active Substance: RIVASTIGMINE
     Indication: Product used for unknown indication
     Route: 065

REACTIONS (3)
  - Blood pressure systolic increased [Unknown]
  - Amyloid related imaging abnormality-oedema/effusion [Unknown]
  - Off label use [Unknown]

NARRATIVE: CASE EVENT DATE: 20250507
